APPROVED DRUG PRODUCT: ERLOTINIB HYDROCHLORIDE
Active Ingredient: ERLOTINIB HYDROCHLORIDE
Strength: EQ 100MG BASE
Dosage Form/Route: TABLET;ORAL
Application: A091002 | Product #002 | TE Code: AB
Applicant: RISING PHARMA HOLDINGS INC
Approved: Jun 11, 2014 | RLD: No | RS: No | Type: RX